FAERS Safety Report 20667129 (Version 1)
Quarter: 2022Q2

REPORT INFORMATION
  Report Type: Spontaneous
  Country: US (occurrence: US)
  Receive Date: 20220404
  Receipt Date: 20220404
  Transmission Date: 20220721
  Serious: No
  Sender: FDA-Public Use
  Company Number: US-drreddys-SPO/USA/22/0148197

PATIENT
  Sex: Male

DRUGS (2)
  1. NICOTINE [Suspect]
     Active Substance: NICOTINE
     Indication: Tobacco user
     Route: 062
  2. NICOTINE [Suspect]
     Active Substance: NICOTINE
     Route: 062

REACTIONS (2)
  - Abnormal dreams [Unknown]
  - Nightmare [Unknown]
